FAERS Safety Report 4445467-8 (Version None)
Quarter: 2004Q3

REPORT INFORMATION
  Report Type: 
  Country: None (occurrence: None)
  Receive Date: 20040802
  Receipt Date: 20040427
  Transmission Date: 20050211
  Serious: No
  Sender: FDA-Public Use
  Company Number: 2004-115980-NL

PATIENT
  Age: 27 Year
  Sex: Female
  Weight: 59.5 kg

DRUGS (3)
  1. NUVARING [Suspect]
     Indication: CONTRACEPTION
     Dosage: DF DAILY VAGINAL
     Route: 067
     Dates: start: 20040312
  2. ORTHO EVRA [Concomitant]
  3. MULTI-VITAMINS [Concomitant]

REACTIONS (5)
  - ABDOMINAL PAIN [None]
  - FLUID RETENTION [None]
  - INCREASED APPETITE [None]
  - METRORRHAGIA [None]
  - WITHDRAWAL BLEEDING IRREGULAR [None]
